FAERS Safety Report 19476961 (Version 1)
Quarter: 2021Q2

REPORT INFORMATION
  Report Type: Spontaneous
  Country: FR (occurrence: FR)
  Receive Date: 20210630
  Receipt Date: 20210630
  Transmission Date: 20210717
  Serious: Yes (Hospitalization)
  Sender: FDA-Public Use
  Company Number: FR-TEVA-2021-FR-1926805

PATIENT
  Sex: Female

DRUGS (1)
  1. RISPERIDONE TEVA [Suspect]
     Active Substance: RISPERIDONE
     Indication: BEHAVIOUR DISORDER
     Dosage: 0.5 MG
     Route: 048
     Dates: start: 20210123

REACTIONS (5)
  - Coma [Not Recovered/Not Resolved]
  - Tremor [Not Recovered/Not Resolved]
  - Vertigo [Not Recovered/Not Resolved]
  - Balance disorder [Not Recovered/Not Resolved]
  - Dyspnoea [Not Recovered/Not Resolved]

NARRATIVE: CASE EVENT DATE: 20210123
